FAERS Safety Report 15410147 (Version 2)
Quarter: 2019Q1

REPORT INFORMATION
  Report Type: Report from Study
  Country: None (occurrence: US)
  Receive Date: 20180921
  Receipt Date: 20190111
  Transmission Date: 20190417
  Serious: Yes (Other)
  Sender: FDA-Public Use
  Company Number: US-ABBVIE-18K-163-2487079-00

PATIENT
  Sex: Female

DRUGS (1)
  1. HUMIRA [Suspect]
     Active Substance: ADALIMUMAB
     Indication: PSORIASIS
     Route: 058

REACTIONS (7)
  - Disturbance in attention [Unknown]
  - Sensitivity to weather change [Unknown]
  - Cerebral ischaemia [Unknown]
  - Psoriasis [Unknown]
  - Cerebral vascular occlusion [Not Recovered/Not Resolved]
  - Brain hypoxia [Unknown]
  - Vascular dementia [Unknown]
